FAERS Safety Report 24599043 (Version 2)
Quarter: 2024Q4

REPORT INFORMATION
  Report Type: Spontaneous
  Country: US (occurrence: US)
  Receive Date: 20241110
  Receipt Date: 20241110
  Transmission Date: 20250114
  Serious: No
  Sender: SANOFI AVENTIS
  Company Number: US-SANOFI-02274920

PATIENT
  Age: 78 Year
  Sex: Female

DRUGS (1)
  1. LANTUS SOLOSTAR [Suspect]
     Active Substance: INSULIN GLARGINE
     Indication: Type 2 diabetes mellitus
     Dosage: 26-28 UNITS QD
     Route: 065
     Dates: start: 2009

REACTIONS (2)
  - Blood glucose increased [Recovered/Resolved]
  - Device defective [Unknown]

NARRATIVE: CASE EVENT DATE: 20240101
